FAERS Safety Report 9228217 (Version 2)
Quarter: 2013Q3

REPORT INFORMATION
  Report Type: Spontaneous
  Country: US (occurrence: US)
  Receive Date: 20130412
  Receipt Date: 20130925
  Transmission Date: 20140515
  Serious: Yes (Hospitalization)
  Sender: FDA-Public Use
  Company Number: US-BAYER-2013-046346

PATIENT
  Age: 22 Year
  Sex: Female
  Weight: 56.69 kg

DRUGS (16)
  1. YAZ [Suspect]
     Indication: CONTRACEPTION
     Dosage: UNK
     Dates: start: 2007, end: 2009
  2. YAZ [Suspect]
     Indication: PREMENSTRUAL SYNDROME
  3. TRAZODONE [Concomitant]
     Dosage: 50 MG, UNK
     Dates: start: 20090721
  4. TRAZODONE [Concomitant]
     Dosage: 50 MG, UNK
     Dates: start: 20090824
  5. TRAZODONE [Concomitant]
     Dosage: 50 MG, UNK
     Dates: start: 20090923
  6. EFFEXOR XR [Concomitant]
     Dosage: 75 MG, UNK
     Dates: start: 20090803
  7. EFFEXOR XR [Concomitant]
     Dosage: 75 MG, UNK
     Dates: start: 20090829
  8. AZITHROMYCIN [Concomitant]
     Dosage: 250 MG, UNK
     Dates: start: 20090806
  9. FEXOFENADINE [Concomitant]
     Dosage: 180 MG, UNK
     Dates: start: 20090804
  10. FEXOFENADINE [Concomitant]
     Dosage: 180 MG, UNK
     Dates: start: 20090923
  11. ALBUTEROL [Concomitant]
     Route: 045
  12. TRAMADOL [Concomitant]
  13. FLOVENT [Concomitant]
  14. EFFEXOR [Concomitant]
  15. CHLORPHENAMINE MALEATE W/PHENYLEPHRINE HCL [Concomitant]
     Indication: SINUS DISORDER
     Dosage: UNK
  16. CHLORPHENAMINE MALEATE W/PHENYLEPHRINE HCL [Concomitant]
     Indication: HYPERSENSITIVITY

REACTIONS (2)
  - Pulmonary embolism [None]
  - Deep vein thrombosis [None]
